FAERS Safety Report 19968841 (Version 1)
Quarter: 2021Q4

REPORT INFORMATION
  Report Type: Spontaneous
  Country: US (occurrence: US)
  Receive Date: 20211019
  Receipt Date: 20211019
  Transmission Date: 20220303
  Serious: No
  Sender: FDA-Public Use
  Company Number: None

PATIENT
  Age: 23 Year
  Sex: Male

DRUGS (2)
  1. LETAIRIS [Suspect]
     Active Substance: AMBRISENTAN
     Indication: Pulmonary arterial hypertension
     Route: 048
     Dates: start: 20161118
  2. ADCIRCA [Concomitant]
     Active Substance: TADALAFIL
     Dates: start: 20161118

REACTIONS (6)
  - Dyspnoea [None]
  - Headache [None]
  - Malaise [None]
  - Vomiting [None]
  - Diarrhoea [None]
  - Faeces discoloured [None]

NARRATIVE: CASE EVENT DATE: 20211012
